FAERS Safety Report 6042899-1 (Version None)
Quarter: 2009Q1

REPORT INFORMATION
  Report Type: 
  Country: None (occurrence: None)
  Receive Date: 20090119
  Receipt Date: 20090114
  Transmission Date: 20090719
  Serious: Yes (Hospitalization)
  Sender: FDA-Public Use
  Company Number: A0763424A

PATIENT
  Age: 55 Year
  Sex: Female

DRUGS (19)
  1. FLONASE [Suspect]
     Dosage: 1SPR TWICE PER DAY
     Route: 045
     Dates: start: 20050101, end: 20090111
  2. ADVAIR DISKUS 100/50 [Suspect]
     Indication: ASTHMA
     Dosage: 1PUFF TWICE PER DAY
     Route: 055
     Dates: start: 20050101, end: 20081218
  3. XOPENEX [Concomitant]
  4. XOPENEX [Concomitant]
     Dosage: 1.25MG THREE TIMES PER DAY
     Route: 055
  5. IPRATROPIUM BROMIDE [Concomitant]
     Dosage: .5MG TWICE PER DAY
     Route: 055
  6. SPIRIVA [Concomitant]
  7. NEXIUM [Concomitant]
  8. LORAZEPAM [Concomitant]
  9. UNSPECIFIED MEDICATION [Concomitant]
  10. KEPPRA [Concomitant]
  11. LISINOPRIL [Concomitant]
  12. NOVOLIN [Concomitant]
  13. NOVOLIN R [Concomitant]
  14. LEXAPRO [Concomitant]
  15. ACETAMINOPHEN AND HYDROCODONE BITARTRATE [Concomitant]
  16. ACETAMINOPHEN + PHENYLTOLOXAMINE [Concomitant]
  17. BYETTA [Concomitant]
  18. CPAP [Concomitant]
  19. OXYGEN [Concomitant]

REACTIONS (3)
  - LOCAL SWELLING [None]
  - NEOPLASM [None]
  - PNEUMONIA [None]
